FAERS Safety Report 9349038 (Version 6)
Quarter: 2013Q3

REPORT INFORMATION
  Report Type: Report from Study
  Country: US (occurrence: US)
  Receive Date: 20130614
  Receipt Date: 20130830
  Transmission Date: 20140515
  Serious: Yes (Other)
  Sender: FDA-Public Use
  Company Number: US-VERTEX PHARMACEUTICALS INC-2013-007045

PATIENT
  Age: 54 Year
  Sex: Male
  Weight: 90 kg

DRUGS (8)
  1. VX-950 (TELAPREVIR) [Suspect]
     Indication: HEPATITIS C
     Dosage: 750 MG, TID
     Route: 048
     Dates: start: 20130605
  2. COPEGUS [Suspect]
     Indication: HEPATITIS C
     Dosage: 600 MG, BID
     Route: 048
     Dates: start: 20130605
  3. COPEGUS [Suspect]
     Dosage: 300 MG, BID
     Route: 048
  4. COPEGUS [Suspect]
     Dosage: 600 MG, BID
     Route: 048
  5. PEGASYS [Suspect]
     Indication: HEPATITIS C
     Dosage: 180 ?G, QW
     Route: 058
     Dates: start: 20130605
  6. DILANTIN [Concomitant]
     Indication: EPILEPSY
     Dosage: 400 MG, QD
     Route: 048
  7. DILANTIN [Concomitant]
     Indication: CONVULSION
     Dosage: 300 MG, QD
     Route: 048
     Dates: start: 201307
  8. LAMICTAL [Concomitant]
     Indication: EPILEPSY
     Route: 048

REACTIONS (18)
  - Petit mal epilepsy [Recovered/Resolved]
  - Lethargy [Not Recovered/Not Resolved]
  - Tooth extraction [Not Recovered/Not Resolved]
  - Toothache [Not Recovered/Not Resolved]
  - Pyrexia [Recovered/Resolved]
  - Weight increased [Not Recovered/Not Resolved]
  - Gastrooesophageal reflux disease [Recovered/Resolved]
  - Underdose [Recovered/Resolved]
  - Malaise [Not Recovered/Not Resolved]
  - Fatigue [Recovered/Resolved]
  - Asthenia [Not Recovered/Not Resolved]
  - Papule [Recovered/Resolved]
  - Anaemia [Unknown]
  - Haemorrhoids [Not Recovered/Not Resolved]
  - Anorectal discomfort [Not Recovered/Not Resolved]
  - Diarrhoea [Unknown]
  - Nausea [Not Recovered/Not Resolved]
  - Dry skin [Unknown]
